FAERS Safety Report 18509448 (Version 3)
Quarter: 2020Q4

REPORT INFORMATION
  Report Type: Spontaneous
  Country: JP (occurrence: JP)
  Receive Date: 20201117
  Receipt Date: 20201208
  Transmission Date: 20210114
  Serious: Yes (Hospitalization, Other)
  Sender: FDA-Public Use
  Company Number: JP-009507513-2011JPN001230J

PATIENT
  Age: 81 Year
  Sex: Male

DRUGS (2)
  1. BCG VACCINE LIVE INTRAVESICAL [Concomitant]
     Indication: BLADDER CANCER STAGE 0, WITH CANCER IN SITU
     Dosage: UNK
     Route: 065
  2. KEYTRUDA [Suspect]
     Active Substance: PEMBROLIZUMAB
     Indication: LUNG ADENOCARCINOMA
     Dosage: UNK
     Route: 041

REACTIONS (1)
  - Acute kidney injury [Recovered/Resolved]
